FAERS Safety Report 9279213 (Version 2)
Quarter: 2013Q3

REPORT INFORMATION
  Report Type: Report from Study
  Country: DE (occurrence: DE)
  Receive Date: 20130508
  Receipt Date: 20130719
  Transmission Date: 20140515
  Serious: Yes (Hospitalization, Other)
  Sender: FDA-Public Use
  Company Number: DE-ABBOTT-13P-062-1084410-00

PATIENT
  Age: 48 Year
  Sex: Female
  Weight: 125 kg

DRUGS (4)
  1. HUMIRA [Suspect]
     Indication: PSORIATIC ARTHROPATHY
     Route: 058
     Dates: start: 20060101, end: 201303
  2. MTX [Concomitant]
     Indication: PRODUCT USED FOR UNKNOWN INDICATION
     Dates: start: 200807, end: 200811
  3. MTX [Concomitant]
     Dates: start: 200811, end: 200905
  4. FOLIC ACID [Concomitant]
     Indication: PRODUCT USED FOR UNKNOWN INDICATION
     Dates: start: 200807, end: 200811

REACTIONS (3)
  - Incisional hernia [Unknown]
  - Uterine cancer [Unknown]
  - Ovarian epithelial cancer [Unknown]
